FAERS Safety Report 17595963 (Version 4)
Quarter: 2020Q2

REPORT INFORMATION
  Report Type: Spontaneous
  Country: CZ (occurrence: CZ)
  Receive Date: 20200329
  Receipt Date: 20200514
  Transmission Date: 20200713
  Serious: Yes (Other)
  Sender: FDA-Public Use
  Company Number: CZ-BEH-2020115049

PATIENT
  Age: 87 Year
  Sex: Female

DRUGS (1)
  1. ALBUREX [Suspect]
     Active Substance: ALBUMIN HUMAN
     Indication: GENERALISED OEDEMA
     Dosage: 100 MILLILITER
     Route: 042
     Dates: start: 20200318, end: 20200318

REACTIONS (5)
  - Ventricular extrasystoles [Recovering/Resolving]
  - Arrhythmia [Recovering/Resolving]
  - Vascular resistance systemic decreased [Recovering/Resolving]
  - Tachycardia [Recovering/Resolving]
  - Hypotension [Recovering/Resolving]

NARRATIVE: CASE EVENT DATE: 20200318
